FAERS Safety Report 15188367 (Version 1)
Quarter: 2018Q3

REPORT INFORMATION
  Report Type: Spontaneous
  Country: US (occurrence: US)
  Receive Date: 20180724
  Receipt Date: 20180724
  Transmission Date: 20181010
  Serious: Yes (Life-Threatening, Other)
  Sender: FDA-Public Use
  Company Number: US-HIKMA PHARMACEUTICALS USA INC.-US-H14001-18-05908

PATIENT
  Age: 29 Year
  Sex: Male

DRUGS (10)
  1. HEROIN [Concomitant]
     Active Substance: DIAMORPHINE
     Indication: HEADACHE
     Dosage: ()
     Route: 042
  2. BUPRENORPHINE. [Concomitant]
     Active Substance: BUPRENORPHINE
     Indication: HEADACHE
     Dosage: ()
     Route: 065
  3. MORPHINE [Suspect]
     Active Substance: MORPHINE
     Route: 065
  4. MORPHINE [Suspect]
     Active Substance: MORPHINE
     Route: 065
  5. FENTANYL. [Suspect]
     Active Substance: FENTANYL
     Indication: HEADACHE
     Dosage: ()
     Route: 065
  6. IBUPROFEN. [Concomitant]
     Active Substance: IBUPROFEN
     Indication: HEADACHE
     Dosage: 400?800 MG
     Route: 065
  7. BUPRENORPHINE. [Concomitant]
     Active Substance: BUPRENORPHINE
     Dosage: ()
     Route: 065
  8. NALOXONE [Concomitant]
     Active Substance: NALOXONE
     Indication: HEADACHE
     Dosage: ()
     Route: 065
  9. MORPHINE [Suspect]
     Active Substance: MORPHINE
     Indication: HEADACHE
     Route: 048
  10. NALOXONE [Concomitant]
     Active Substance: NALOXONE
     Dosage: ()
     Route: 065

REACTIONS (6)
  - Drug abuse [Unknown]
  - Inappropriate schedule of drug administration [Unknown]
  - Respiratory arrest [Recovered/Resolved]
  - Drug use disorder [Unknown]
  - Self-medication [Unknown]
  - Overdose [Unknown]
